FAERS Safety Report 9565714 (Version 2)
Quarter: 2013Q4

REPORT INFORMATION
  Report Type: Report from Study
  Country: BE (occurrence: BE)
  Receive Date: 20130930
  Receipt Date: 20131018
  Transmission Date: 20140711
  Serious: Yes (Hospitalization)
  Sender: FDA-Public Use
  Company Number: BE-ABBVIE-13P-013-1149808-00

PATIENT
  Age: 53 Year
  Sex: Female
  Weight: 44 kg

DRUGS (26)
  1. HUMIRA [Suspect]
     Indication: UVEITIS
     Route: 058
     Dates: start: 20111013
  2. ALENDRONIC ACID [Concomitant]
     Indication: OSTEOPOROSIS
     Route: 048
     Dates: start: 200802
  3. ALVITYL [Concomitant]
     Indication: VITAMIN SUPPLEMENTATION
     Route: 048
     Dates: start: 2010
  4. BIOCONDIL [Concomitant]
     Indication: JOINT STIFFNESS
     Route: 048
     Dates: start: 200906
  5. BROTIZOLAM [Concomitant]
     Indication: INSOMNIA
     Route: 048
     Dates: start: 2009
  6. CACIT D3 [Concomitant]
     Indication: OSTEOPOROSIS
     Dosage: 500 MG/440 IE
     Route: 048
     Dates: start: 20070319
  7. CLOTIAZEPAM [Concomitant]
     Indication: INSOMNIA
     Route: 048
     Dates: start: 2009
  8. FENOFIBRATE [Concomitant]
     Indication: HYPERCHOLESTEROLAEMIA
     Route: 048
     Dates: start: 201004
  9. FERRICURE [Concomitant]
     Indication: ANAEMIA
     Route: 048
  10. POTASSIUM GLUCONATE [Concomitant]
     Indication: HYPOKALAEMIA
     Dosage: 4.68G/15 ML
     Route: 048
     Dates: start: 20080220
  11. NAPROXEN [Concomitant]
     Indication: ARTHRALGIA
     Route: 048
     Dates: start: 2010, end: 201207
  12. NAPROXEN [Concomitant]
     Indication: MUSCULOSKELETAL CHEST PAIN
     Route: 048
     Dates: start: 20130331
  13. NAPROXEN [Concomitant]
     Indication: RIB DEFORMITY
  14. OMEPRAZOL [Concomitant]
     Indication: GASTRIC DISORDER
     Route: 048
     Dates: start: 20081106
  15. OMEPRAZOL [Concomitant]
     Indication: PROPHYLAXIS
  16. SPIRONOLACTON [Concomitant]
     Indication: HYPOKALAEMIA
     Route: 048
     Dates: start: 20080404
  17. TETRAZEPAM [Concomitant]
     Indication: MUSCLE RELAXANT THERAPY
     Route: 048
     Dates: start: 2009
  18. METHYLPREDNISOLON [Concomitant]
     Indication: PRODUCT USED FOR UNKNOWN INDICATION
     Route: 048
     Dates: start: 20111014, end: 20111020
  19. METHYLPREDNISOLON [Concomitant]
     Route: 048
     Dates: start: 20111021, end: 20111109
  20. METHYLPREDNISOLON [Concomitant]
     Route: 048
     Dates: start: 20111110, end: 20111208
  21. METHYLPREDNISOLON [Concomitant]
     Route: 048
     Dates: start: 20111209, end: 20120105
  22. METHYLPREDNISOLON [Concomitant]
     Route: 048
     Dates: start: 20120106, end: 20121025
  23. METHYLPREDNISOLON [Concomitant]
     Route: 048
     Dates: start: 20121026, end: 20130404
  24. METHYLPREDNISOLON [Concomitant]
     Route: 048
     Dates: start: 20130405
  25. ACICLOVIR SANDOZ [Concomitant]
     Indication: HERPES ZOSTER
     Route: 048
     Dates: start: 20130802, end: 20130807
  26. ISOBETADINE [Concomitant]
     Indication: HERPES ZOSTER
     Route: 061
     Dates: start: 20130802, end: 20130804

REACTIONS (1)
  - Epicondylitis [Recovered/Resolved]
